FAERS Safety Report 6288659-8 (Version None)
Quarter: 2009Q3

REPORT INFORMATION
  Report Type: 
  Country: None (occurrence: None)
  Receive Date: 20090729
  Receipt Date: 20090720
  Transmission Date: 20100115
  Serious: Yes (Hospitalization, Other)
  Sender: FDA-Public Use
  Company Number: US-MERCK-0903USA04212

PATIENT
  Age: 63 Year
  Sex: Female

DRUGS (5)
  1. FOSAMAX [Suspect]
     Indication: OSTEOPOROSIS
     Route: 048
     Dates: start: 19980101, end: 20061001
  2. FOSAMAX [Suspect]
     Route: 048
     Dates: start: 19980101, end: 20061001
  3. FOSAMAX [Suspect]
     Route: 048
     Dates: start: 20000301, end: 20010101
  4. FOSAMAX [Suspect]
     Route: 048
     Dates: start: 20010101
  5. PREMARIN [Concomitant]
     Indication: MENOPAUSE
     Route: 065
     Dates: start: 19900101, end: 20050101

REACTIONS (23)
  - ANXIETY [None]
  - BLADDER IRRITATION [None]
  - BLOOD CHOLESTEROL INCREASED [None]
  - BONE GRAFT [None]
  - DENTAL CARIES [None]
  - DEPRESSION [None]
  - DRUG INEFFECTIVE [None]
  - FAILURE OF IMPLANT [None]
  - FISTULA [None]
  - GINGIVAL DISORDER [None]
  - HYPERTENSION [None]
  - ORAL INFECTION [None]
  - OSTEONECROSIS [None]
  - OSTEOPENIA [None]
  - PAIN [None]
  - PERIODONTAL DISEASE [None]
  - RESORPTION BONE INCREASED [None]
  - SOCIAL PHOBIA [None]
  - TOOTH DISORDER [None]
  - TOOTH LOSS [None]
  - UTERINE POLYP [None]
  - VAGINAL INFECTION [None]
  - WRIST FRACTURE [None]
